FAERS Safety Report 8885683 (Version 1)
Quarter: 2012Q4

REPORT INFORMATION
  Report Type: 
  Country: FR (occurrence: FR)
  Receive Date: 20121102
  Receipt Date: 20121102
  Transmission Date: 20130627
  Serious: Yes (Death, Hospitalization, Other)
  Sender: FDA-Public Use
  Company Number: FR-PAR PHARMACEUTICAL, INC-2012SCPR004693

PATIENT

DRUGS (4)
  1. ZOLPIDEM TARTRATE [Suspect]
     Indication: HYPNOTHERAPY
     Dosage: UNK, Unknown
     Route: 065
  2. CYAMEMAZINE [Suspect]
     Indication: PRODUCT USED FOR UNKNOWN INDICATION
     Dosage: UNK, Unknown
     Route: 065
  3. CARBAMAZEPINE [Suspect]
     Indication: EPILEPSY
     Dosage: UNK, Unknown
     Route: 065
  4. CLOBAZAM [Suspect]
     Indication: PRODUCT USED FOR UNKNOWN INDICATION
     Dosage: UNK, Unknown
     Route: 065

REACTIONS (20)
  - Abdominal compartment syndrome [Fatal]
  - Death [Fatal]
  - Cardiac arrest [Fatal]
  - Coma [Unknown]
  - Multi-organ failure [Fatal]
  - Colonic pseudo-obstruction [Not Recovered/Not Resolved]
  - Aortic occlusion [Unknown]
  - Hypothermia [Unknown]
  - Peripheral ischaemia [Unknown]
  - Megacolon [None]
  - Blood pressure systolic decreased [None]
  - Oxygen saturation decreased [None]
  - Heart rate increased [None]
  - Pulse absent [None]
  - Hyperkalaemia [None]
  - Blood creatinine increased [None]
  - Blood lactic acid increased [None]
  - Amylase increased [None]
  - Lipase increased [None]
  - Visceral arterial ischaemia [None]
